FAERS Safety Report 24324908 (Version 1)
Quarter: 2024Q3

REPORT INFORMATION
  Report Type: Spontaneous
  Country: CH (occurrence: CH)
  Receive Date: 20240916
  Receipt Date: 20240916
  Transmission Date: 20241016
  Serious: Yes (Hospitalization)
  Sender: AMERICAN REGENT
  Company Number: CH-AMERICAN REGENT INC-2024003516

PATIENT
  Age: 20 Year
  Sex: Female
  Weight: 70 kg

DRUGS (2)
  1. FERINJECT [Suspect]
     Active Substance: FERRIC CARBOXYMALTOSE
     Indication: Iron deficiency anaemia
     Dosage: UNK
  2. FERINJECT [Suspect]
     Active Substance: FERRIC CARBOXYMALTOSE
     Indication: Anaemia
     Dosage: UNK
     Dates: start: 202211, end: 202211

REACTIONS (12)
  - Haematemesis [Unknown]
  - Melaena [Unknown]
  - Meningitis viral [Unknown]
  - Upper gastrointestinal haemorrhage [Unknown]
  - Neck pain [Unknown]
  - Musculoskeletal stiffness [Unknown]
  - Hypoaesthesia [Unknown]
  - Muscle contracture [Unknown]
  - Tension headache [Unknown]
  - Hypophosphataemia [Recovering/Resolving]
  - Headache [Unknown]
  - Vomiting [Unknown]

NARRATIVE: CASE EVENT DATE: 20220101
